FAERS Safety Report 8321176-X (Version None)
Quarter: 2012Q2

REPORT INFORMATION
  Report Type: 
  Country: None (occurrence: None)
  Receive Date: 20120430
  Receipt Date: 20120425
  Transmission Date: 20120825
  Serious: Yes (Death)
  Sender: FDA-Public Use
  Company Number: EG-SANOFI-AVENTIS-2012SA029063

PATIENT
  Age: 70 Year
  Sex: Male

DRUGS (2)
  1. LANTUS [Suspect]
     Dosage: DOSE:20 UNIT(S)
     Route: 058
     Dates: start: 20120311, end: 20120325
  2. LANTUS [Suspect]
     Dosage: DOSE:13 UNIT(S)
     Route: 058
     Dates: start: 20120104, end: 20120301

REACTIONS (1)
  - HEPATITIS C [None]
